FAERS Safety Report 15778836 (Version 2)
Quarter: 2019Q1

REPORT INFORMATION
  Report Type: Report from Study
  Country: FR (occurrence: FR)
  Receive Date: 20190101
  Receipt Date: 20190201
  Transmission Date: 20190417
  Serious: Yes (Hospitalization)
  Sender: FDA-Public Use
  Company Number: FR-ROCHE-2231491

PATIENT
  Age: 64 Year
  Sex: Male
  Weight: 71 kg

DRUGS (7)
  1. ATEZOLIZUMAB. [Suspect]
     Active Substance: ATEZOLIZUMAB
     Indication: B-CELL LYMPHOMA
     Dosage: ON 29.NOV/2018, HE RECEIVED HIS LAST ADMINISTARTION OF ATEZOLIZUMAB BEFORE THE SAE
     Route: 042
     Dates: start: 20181129, end: 20181220
  2. BACTRIM [Concomitant]
     Active Substance: SULFAMETHOXAZOLE\TRIMETHOPRIM
     Route: 065
     Dates: start: 20170814
  3. FOLIC ACID. [Concomitant]
     Active Substance: FOLIC ACID
     Route: 065
     Dates: start: 20170814
  4. OBINUTUZUMAB. [Suspect]
     Active Substance: OBINUTUZUMAB
     Indication: B-CELL LYMPHOMA
     Dosage: ON 06/DEC/2018, HE RECEIVED HIS LAST ADMINISTARTION OF OBINUTUZUMAB BEFORE THE SAE
     Route: 042
     Dates: start: 20181128, end: 20181219
  5. VALACICLOVIR [Concomitant]
     Active Substance: VALACYCLOVIR HYDROCHLORIDE
     Route: 065
     Dates: start: 20170814
  6. VENETOCLAX. [Suspect]
     Active Substance: VENETOCLAX
     Indication: B-CELL LYMPHOMA
     Dosage: ON 11/DEC/2018, HE RECEIVED HIS LAST ADMINISTARTION OF VENETOCLAX BEFORE THE SAE
     Route: 065
     Dates: start: 20181206, end: 20181227
  7. RAMIPRIL. [Concomitant]
     Active Substance: RAMIPRIL
     Route: 065
     Dates: start: 20180218

REACTIONS (1)
  - Pancreatitis acute [Not Recovered/Not Resolved]

NARRATIVE: CASE EVENT DATE: 20181228
